FAERS Safety Report 9414904 (Version 2)
Quarter: 2013Q3

REPORT INFORMATION
  Report Type: Spontaneous
  Country: US (occurrence: None)
  Receive Date: 20130718
  Receipt Date: 20130725
  Transmission Date: 20140515
  Serious: Yes (Hospitalization, Other)
  Sender: FDA-Public Use
  Company Number: AUR-APL-2013-06007

PATIENT
  Age: 73 Year
  Sex: Female
  Weight: 71.65 kg

DRUGS (8)
  1. LISINOPRIL (LISINOPRIL) [Suspect]
     Indication: HYPERTENSION
     Dosage: 40 MG ( 20 MG, 2 IN 1 D)
  2. TIKOSYN (DOFETILIDE) [Suspect]
     Indication: ATRIAL FIBRILLATION
     Dates: end: 20130703
  3. GLIMEPIRIDE (GLIMEPIRIDE) [Concomitant]
  4. ISOSORBIDE MONONITRATE (ISOSORBIDE MONONITRATE) [Concomitant]
  5. PRAVASTATIN (PRAVASTATIN) [Concomitant]
  6. PLAVIX (CLOPIDOGREL BISULFATE) [Concomitant]
  7. SERTRALINE (SETRALINE) [Concomitant]
  8. PANTOPRAZOLE (PANTOPRAZOLE) [Concomitant]

REACTIONS (4)
  - Atrial fibrillation [None]
  - Arrhythmia [None]
  - Brain injury [None]
  - Haemorrhage intracranial [None]
